FAERS Safety Report 5187179-1 (Version None)
Quarter: 2006Q4

REPORT INFORMATION
  Report Type: 
  Country: None (occurrence: None)
  Receive Date: 20061214
  Receipt Date: 20061129
  Transmission Date: 20070319
  Serious: Yes (Hospitalization)
  Sender: FDA-Public Use
  Company Number: S06-POL-05172-01

PATIENT
  Age: 66 Year
  Sex: Female

DRUGS (7)
  1. CITALOPRAM HYDROBROMIDE [Suspect]
     Dosage: 20 MG QD PO
     Route: 048
     Dates: start: 20061010, end: 20061018
  2. TERTENSIF - SLOW RELEASE (INDAPAMIDE) [Suspect]
     Dosage: 1.5 MG QD PO
     Route: 048
     Dates: start: 20061010, end: 20061018
  3. POLOCARD [Suspect]
     Dates: start: 20061010, end: 20061018
  4. LOSEC (OMEPRAZOLE) [Concomitant]
  5. TRANXENE [Concomitant]
  6. BETALOC ZOK 25 (METOPROLOL SUCCINATE) [Concomitant]
  7. MAPRYL (ENALAPRIL MALEATE) [Concomitant]

REACTIONS (2)
  - HAIR DISORDER [None]
  - SKIN EXFOLIATION [None]
